FAERS Safety Report 9372133 (Version 1)
Quarter: 2013Q2

REPORT INFORMATION
  Report Type: Spontaneous
  Country: US (occurrence: None)
  Receive Date: 20130625
  Receipt Date: 20130625
  Transmission Date: 20140414
  Serious: Yes (Hospitalization)
  Sender: FDA-Public Use
  Company Number: 2013AP006143

PATIENT
  Age: 73 Year
  Sex: Male

DRUGS (1)
  1. TOPIRAMATE TABLETS [Suspect]
     Indication: HEADACHE

REACTIONS (7)
  - Disorientation [None]
  - Perseveration [None]
  - Headache [None]
  - Vision blurred [None]
  - Haemodialysis [None]
  - Intracranial pressure increased [None]
  - Condition aggravated [None]
